FAERS Safety Report 9421040 (Version 5)
Quarter: 2013Q4

REPORT INFORMATION
  Report Type: Report from Study
  Country: RU (occurrence: RU)
  Receive Date: 20130725
  Receipt Date: 20131009
  Transmission Date: 20140711
  Serious: Yes (Hospitalization)
  Sender: FDA-Public Use
  Company Number: RU-JNJFOC-20130713859

PATIENT
  Age: 34 Year
  Sex: Female
  Weight: 73.7 kg

DRUGS (7)
  1. GOLIMUMAB [Suspect]
     Indication: SPONDYLITIS
     Route: 058
     Dates: start: 20130206, end: 20130206
  2. GOLIMUMAB [Suspect]
     Indication: SPONDYLITIS
     Route: 058
     Dates: start: 20130527, end: 20130527
  3. GOLIMUMAB [Suspect]
     Indication: SPONDYLITIS
     Route: 058
     Dates: start: 20130625, end: 20130625
  4. GOLIMUMAB [Suspect]
     Indication: SPONDYLITIS
     Route: 058
     Dates: start: 20130722, end: 20130722
  5. GOLIMUMAB [Suspect]
     Indication: SPONDYLITIS
     Route: 058
     Dates: start: 20130820, end: 20130820
  6. GOLIMUMAB [Suspect]
     Indication: SPONDYLITIS
     Route: 058
     Dates: start: 20130919, end: 20130919
  7. MELOXICAM [Concomitant]
     Indication: SPONDYLITIS
     Dosage: STRENGTH 30 MG
     Route: 048
     Dates: start: 20070307

REACTIONS (1)
  - Uterine polyp [Recovered/Resolved]
